FAERS Safety Report 22367756 (Version 1)
Quarter: 2023Q2

REPORT INFORMATION
  Report Type: Spontaneous
  Country: US (occurrence: US)
  Receive Date: 20230525
  Receipt Date: 20230525
  Transmission Date: 20230722
  Serious: No
  Sender: FDA-Public Use
  Company Number: US-MYLANLABS-2023M1051530

PATIENT
  Sex: Female

DRUGS (1)
  1. VENLAFAXINE [Suspect]
     Active Substance: VENLAFAXINE HYDROCHLORIDE
     Indication: Migraine
     Dosage: UNK
     Route: 065
     Dates: start: 20190402

REACTIONS (5)
  - Hot flush [Unknown]
  - Treatment failure [Unknown]
  - Drug intolerance [Unknown]
  - Contraindication to medical treatment [Unknown]
  - Off label use [Unknown]
